FAERS Safety Report 5361351-X (Version None)
Quarter: 2007Q2

REPORT INFORMATION
  Report Type: 
  Country: None (occurrence: None)
  Receive Date: 20070612
  Receipt Date: 20070530
  Transmission Date: 20071010
  Serious: Yes (Hospitalization)
  Sender: FDA-Public Use
  Company Number: 280001M07JPN

PATIENT
  Age: 42 Year
  Sex: Female
  Weight: 49 kg

DRUGS (8)
  1. CETROTIDE [Suspect]
     Indication: PREVENTION OF PREMATURE OVULATION
     Dosage: 0.25 MG, 1 IN 1 DAYS, INTRAMUSCULAR
     Route: 030
     Dates: start: 20070328, end: 20070328
  2. SEROPHENE [Suspect]
     Indication: OVULATION INDUCTION
     Dosage: 100 MG, 2 IN 1 DAYS, ORAL
     Route: 048
     Dates: start: 20070321, end: 20070328
  3. FERTINORM P (MENOTROPHIN) [Suspect]
     Indication: OVULATION INDUCTION
     Dosage: 75 MG, INTRAMUSCULAR
     Route: 030
     Dates: start: 20070321, end: 20070328
  4. PREGNYL [Suspect]
     Indication: OVULATION INDUCTION
     Dosage: 10000 IU, ONCE
     Dates: start: 20070329, end: 20070329
  5. PROPOFOL [Suspect]
     Indication: ANAESTHESIA
     Dosage: 150 MG, ONCE, INTRAVENOUS (NOT OTHERWISE SPECIFIED)
     Route: 042
     Dates: start: 20070331, end: 20070331
  6. SOSEGON (PENTAZOCINE) [Suspect]
     Dosage: 7.5 MG
     Dates: start: 20070331
  7. PREDONINE (PEDNISOLONE /00016201/) [Concomitant]
  8. BUFFERIN (BUFFERIN /00009201/) [Concomitant]

REACTIONS (2)
  - BLOOD PRESSURE DECREASED [None]
  - PULMONARY ALVEOLAR HAEMORRHAGE [None]
